FAERS Safety Report 7104590-X (Version None)
Quarter: 2010Q4

REPORT INFORMATION
  Report Type: 
  Country: None (occurrence: None)
  Receive Date: 20101108
  Receipt Date: 20101025
  Transmission Date: 20110411
  Serious: Yes (Death)
  Sender: FDA-Public Use
  Company Number: EUS-2010-01013

PATIENT
  Age: 62 Year
  Sex: Female
  Weight: 50 kg

DRUGS (3)
  1. QUADRAMET [Suspect]
     Indication: PALLIATIVE CARE
     Dosage: 50 MCI AT A DOSE OF 1 MCG/KG, INTRAVENOUS
     Route: 042
     Dates: start: 20101020, end: 20101022
  2. DOCUSATE (DOCUSATE) [Concomitant]
  3. ZOLEDRONIC ACID [Concomitant]

REACTIONS (1)
  - PNEUMONIA [None]
